FAERS Safety Report 6276623-4 (Version None)
Quarter: 2009Q3

REPORT INFORMATION
  Report Type: 
  Country: None (occurrence: None)
  Receive Date: 20090722
  Receipt Date: 20080910
  Transmission Date: 20100115
  Serious: Yes (Hospitalization, Other)
  Sender: FDA-Public Use
  Company Number: US-BRISTOL-MYERS SQUIBB COMPANY-14231757

PATIENT
  Sex: Female

DRUGS (1)
  1. COUMADIN [Suspect]
     Indication: PROPHYLAXIS
     Dates: start: 20030101

REACTIONS (5)
  - FALL [None]
  - PRURITUS [None]
  - SUBDURAL HAEMATOMA [None]
  - SYNCOPE [None]
  - THROMBOSIS [None]
